FAERS Safety Report 9305470 (Version 2)
Quarter: 2013Q3

REPORT INFORMATION
  Report Type: Spontaneous
  Country: US (occurrence: US)
  Receive Date: 20130523
  Receipt Date: 20130702
  Transmission Date: 20140515
  Serious: Yes (Other)
  Sender: FDA-Public Use
  Company Number: US-SANOFI-AVENTIS-2013SA051604

PATIENT
  Age: 81 Year
  Sex: Male
  Weight: 74.38 kg

DRUGS (6)
  1. MULTAQ [Suspect]
     Indication: ATRIAL FIBRILLATION
     Route: 048
     Dates: start: 201009
  2. FUROSEMIDE [Concomitant]
     Dosage: 1 DAILY PLUS 1 MWF
     Dates: start: 20130201
  3. POTASSIUM [Concomitant]
     Indication: CARDIAC DISORDER
  4. ASPIRIN [Concomitant]
     Indication: CARDIAC DISORDER
  5. VITAMIN B12 [Concomitant]
  6. LUPRON [Concomitant]
     Indication: NEOPLASM MALIGNANT
     Dosage: 3 MOS SHOT
     Dates: start: 20130429

REACTIONS (7)
  - Prostate cancer [Unknown]
  - Metastases to lung [Unknown]
  - Hernia [Unknown]
  - Cardiac failure congestive [Unknown]
  - Dizziness [Recovered/Resolved]
  - Nausea [Recovered/Resolved]
  - Extra dose administered [Unknown]
